FAERS Safety Report 4707381-X (Version None)
Quarter: 2005Q3

REPORT INFORMATION
  Report Type: 
  Country: None (occurrence: None)
  Receive Date: 20050701
  Receipt Date: 20050701
  Transmission Date: 20060218
  Serious: Yes (Hospitalization)
  Sender: FDA-Public Use
  Company Number: None

PATIENT
  Sex: Female

DRUGS (4)
  1. VELCADE [Suspect]
     Indication: MANTLE CELL LYMPHOMA
     Dosage: IV D1 + D4 OF 21 DAY CYCLE X 6 WEEKS
     Route: 042
     Dates: start: 20050418
  2. VELCADE [Suspect]
     Indication: MANTLE CELL LYMPHOMA
     Dosage: IV D1 + D4 OF 21 DAY CYCLE X 6 WEEKS
     Route: 042
     Dates: start: 20050421
  3. VELCADE [Suspect]
     Indication: MANTLE CELL LYMPHOMA
     Dosage: IV D1 + D4 OF 21 DAY CYCLE X 6 WEEKS
     Route: 042
     Dates: start: 20050509
  4. VELCADE [Suspect]
     Indication: MANTLE CELL LYMPHOMA
     Dosage: IV D1 + D4 OF 21 DAY CYCLE X 6 WEEKS
     Route: 042
     Dates: start: 20050521

REACTIONS (2)
  - GRANULOMA [None]
  - PYREXIA [None]
